FAERS Safety Report 5376635-9 (Version None)
Quarter: 2007Q2

REPORT INFORMATION
  Report Type: 
  Country: None (occurrence: None)
  Receive Date: 20070629
  Receipt Date: 20070619
  Transmission Date: 20071010
  Serious: Yes (Life-Threatening, Hospitalization, Disabling, Congenital Anomaly, Other)
  Sender: FDA-Public Use
  Company Number: 07062155

PATIENT

DRUGS (2)
  1. CARBAMAZEPINE [Suspect]
     Indication: EPILEPSY
     Dosage: ORAL
     Route: 048
  2. PHENOBARBITAL TAB [Suspect]
     Indication: EPILEPSY
     Dosage: ORAL
     Route: 048

REACTIONS (8)
  - CONGENITAL NOSE MALFORMATION [None]
  - CONGENITAL RENAL CYST [None]
  - DRUG EXPOSURE DURING PREGNANCY [None]
  - DYSMORPHISM [None]
  - HYPERTELORISM OF ORBIT [None]
  - PROMINENT EPICANTHAL FOLDS [None]
  - RENAL DYSPLASIA [None]
  - RENAL HYPERTROPHY [None]
